FAERS Safety Report 9113720 (Version 1)
Quarter: 2013Q1

REPORT INFORMATION
  Report Type: Spontaneous
  Country: US (occurrence: US)
  Receive Date: 20130208
  Receipt Date: 20130208
  Transmission Date: 20140127
  Serious: Yes (Death)
  Sender: FDA-Public Use
  Company Number: CHPA2013US002385

PATIENT
  Age: 45 Year
  Sex: Male

DRUGS (7)
  1. CAFFEINE [Suspect]
     Dosage: UNK, UNK
  2. CODEINE [Suspect]
     Dosage: UNK, UNK
  3. OXYCODONE [Suspect]
     Dosage: UNK, UNK
  4. ACETAMINOPHEN W/HYDROCODONE [Suspect]
     Dosage: UNK, UNK
  5. ETHANOL [Suspect]
     Dosage: UNK, UNK
  6. BUTALBITAL [Suspect]
     Dosage: UNK, UNK
  7. TEMAZEPAM [Suspect]
     Dosage: UNK, UNK

REACTIONS (1)
  - Drug abuse [Fatal]
